FAERS Safety Report 11517174 (Version 1)
Quarter: 2015Q3

REPORT INFORMATION
  Report Type: Spontaneous
  Country: US (occurrence: None)
  Receive Date: 20150916
  Receipt Date: 20150916
  Transmission Date: 20151125
  Serious: Yes (Hospitalization)
  Sender: FDA-Public Use
  Company Number: None

PATIENT
  Age: 57 Year
  Sex: Male
  Weight: 106.14 kg

DRUGS (12)
  1. MEDTRONIC PACEMAKER [Concomitant]
  2. VIT B COMPLEX [Concomitant]
  3. TYLENOL ARTHRITIS PAIN [Concomitant]
     Active Substance: ACETAMINOPHEN
  4. TEXAS SUPERFOODS [Concomitant]
  5. BYSTOLIC [Suspect]
     Active Substance: NEBIVOLOL HYDROCHLORIDE
     Indication: HEART RATE INCREASED
     Route: 048
     Dates: end: 20150710
  6. SYNTHROID [Concomitant]
     Active Substance: LEVOTHYROXINE SODIUM
  7. ALLOPURINOL. [Concomitant]
     Active Substance: ALLOPURINOL
  8. EFFIENT [Concomitant]
     Active Substance: PRASUGREL HYDROCHLORIDE
  9. VIT D 3 [Concomitant]
  10. LOPID [Concomitant]
     Active Substance: GEMFIBROZIL
  11. LOPRESSOR [Concomitant]
     Active Substance: METOPROLOL TARTRATE
  12. NIASPAN [Concomitant]
     Active Substance: NIACIN

REACTIONS (3)
  - Atrial fibrillation [None]
  - Fall [None]
  - Heart rate decreased [None]

NARRATIVE: CASE EVENT DATE: 20150710
